FAERS Safety Report 15786978 (Version 1)
Quarter: 2019Q1

REPORT INFORMATION
  Report Type: Spontaneous
  Country: CN (occurrence: CN)
  Receive Date: 20190103
  Receipt Date: 20190103
  Transmission Date: 20190417
  Serious: Yes (Life-Threatening)
  Sender: FDA-Public Use
  Company Number: CN-PFIZER INC-2019000822

PATIENT
  Age: 68 Year
  Sex: Male
  Weight: 62 kg

DRUGS (2)
  1. ASPIRIN (E.C.) [Suspect]
     Active Substance: ASPIRIN
     Indication: SURGERY
     Dosage: 1 DF, 1X/DAY
     Route: 048
     Dates: start: 20180920, end: 20181122
  2. CELEBREX [Suspect]
     Active Substance: CELECOXIB
     Indication: SURGERY
     Dosage: 1 DF, 1X/DAY
     Route: 048
     Dates: start: 20180920, end: 20181122

REACTIONS (5)
  - Upper gastrointestinal haemorrhage [Not Recovered/Not Resolved]
  - Lung infection [Not Recovered/Not Resolved]
  - Oesophageal perforation [Not Recovered/Not Resolved]
  - Shock haemorrhagic [Not Recovered/Not Resolved]
  - Traumatic haemothorax [Not Recovered/Not Resolved]

NARRATIVE: CASE EVENT DATE: 20181121
